FAERS Safety Report 4332273-8 (Version None)
Quarter: 2004Q1

REPORT INFORMATION
  Report Type: 
  Country: None (occurrence: None)
  Receive Date: 20040331
  Receipt Date: 20040318
  Transmission Date: 20041129
  Serious: Yes (Life-Threatening)
  Sender: FDA-Public Use
  Company Number: JP_040302811

PATIENT
  Age: 50 Year
  Sex: Male
  Weight: 65 kg

DRUGS (2)
  1. GEMZAR [Suspect]
     Indication: METASTATIC NEOPLASM
     Dosage: 1300 MG OTHER
     Route: 050
     Dates: start: 20031209, end: 20031216
  2. FENTANYL [Concomitant]

REACTIONS (4)
  - COUGH [None]
  - HYPOXIA [None]
  - INTERSTITIAL LUNG DISEASE [None]
  - MALIGNANT NEOPLASM PROGRESSION [None]
